FAERS Safety Report 5935893-X (Version None)
Quarter: 2008Q4

REPORT INFORMATION
  Report Type: 
  Country: None (occurrence: None)
  Receive Date: 20081030
  Receipt Date: 20071108
  Transmission Date: 20090506
  Serious: No
  Sender: FDA-Public Use
  Company Number: A0667896A

PATIENT
  Age: 44 Year
  Sex: Female

DRUGS (2)
  1. IMITREX [Suspect]
     Indication: MIGRAINE
     Dosage: 20MG AS REQUIRED
     Route: 045
  2. HYDROCODONE BITARTRATE [Concomitant]

REACTIONS (4)
  - BURNING SENSATION [None]
  - OROPHARYNGEAL DISCOMFORT [None]
  - PRODUCT QUALITY ISSUE [None]
  - SINUS CONGESTION [None]
